FAERS Safety Report 7791884-8 (Version None)
Quarter: 2011Q4

REPORT INFORMATION
  Report Type: 
  Country: None (occurrence: None)
  Receive Date: 20111003
  Receipt Date: 20110928
  Transmission Date: 20120403
  Serious: No
  Sender: FDA-Public Use
  Company Number: US-PFIZER INC-2011232048

PATIENT
  Sex: Female
  Weight: 111 kg

DRUGS (3)
  1. EFFEXOR XR [Suspect]
     Indication: OBSESSIVE-COMPULSIVE PERSONALITY DISORDER
     Dosage: 75 MG, 1X/DAY
     Route: 048
     Dates: start: 20060601
  2. EFFEXOR XR [Suspect]
     Indication: DEPRESSION
  3. WELLBUTRIN [Concomitant]
     Dosage: UNK
     Dates: start: 20100401

REACTIONS (3)
  - WITHDRAWAL SYNDROME [None]
  - MALAISE [None]
  - NAUSEA [None]
